FAERS Safety Report 4820943-4 (Version None)
Quarter: 2005Q4

REPORT INFORMATION
  Report Type: 
  Country: None (occurrence: None)
  Receive Date: 20051104
  Receipt Date: 20051014
  Transmission Date: 20060501
  Serious: Yes (Other)
  Sender: FDA-Public Use
  Company Number: US-ROCHE-421259

PATIENT
  Age: 53 Year
  Sex: Male
  Weight: 93 kg

DRUGS (2)
  1. PEGASYS [Suspect]
     Route: 058
     Dates: start: 20050204, end: 20051012
  2. COPEGUS [Suspect]
     Route: 048
     Dates: start: 20050204, end: 20051017

REACTIONS (8)
  - BACK PAIN [None]
  - BRONCHITIS [None]
  - DIVERTICULITIS [None]
  - FATIGUE [None]
  - MUSCLE SPASMS [None]
  - PLATELET COUNT DECREASED [None]
  - WEIGHT DECREASED [None]
  - WHITE BLOOD CELL COUNT DECREASED [None]
